FAERS Safety Report 10335569 (Version 1)
Quarter: 2014Q3

REPORT INFORMATION
  Report Type: Spontaneous
  Country: US (occurrence: None)
  Receive Date: 20140722
  Receipt Date: 20140722
  Transmission Date: 20150326
  Serious: No
  Sender: FDA-Public Use
  Company Number: None

PATIENT
  Age: 52 Year
  Sex: Female
  Weight: 95.26 kg

DRUGS (1)
  1. DULOXETINE HCL DR 60 MG TEVA [Suspect]
     Active Substance: DULOXETINE HYDROCHLORIDE
     Indication: PAIN
     Dosage: 1  ONCE DAILY TAKEN BY MOUTH
     Route: 048
     Dates: start: 20140510, end: 20140721

REACTIONS (7)
  - Activities of daily living impaired [None]
  - Sleep disorder [None]
  - Decreased interest [None]
  - Disease recurrence [None]
  - Product substitution issue [None]
  - Pain [None]
  - Depression [None]
